FAERS Safety Report 9345770 (Version 1)
Quarter: 2013Q2

REPORT INFORMATION
  Report Type: Spontaneous
  Country: US (occurrence: US)
  Receive Date: 20130613
  Receipt Date: 20130613
  Transmission Date: 20140414
  Serious: No
  Sender: FDA-Public Use
  Company Number: US-PFIZER INC-2013176748

PATIENT
  Age: 39 Year
  Sex: Female
  Weight: 122 kg

DRUGS (6)
  1. XANAX [Suspect]
     Indication: GENERALISED ANXIETY DISORDER
     Dosage: UNK
     Route: 048
  2. XANAX [Suspect]
     Dosage: 2 MG, 4X/DAY
     Route: 048
     Dates: end: 20130405
  3. KLONOPIN [Suspect]
     Indication: SLEEP DISORDER
     Dosage: 2 MG, 2X/DAY
     Dates: start: 201303, end: 20130405
  4. VALIUM [Suspect]
     Indication: SLEEP DISORDER
     Dosage: 20 MG, 2X/DAY
     Route: 048
     Dates: start: 201303, end: 20130405
  5. ZANAFLEX [Suspect]
     Indication: MUSCLE RELAXANT THERAPY
     Dosage: 16 MG, DAILY
     Dates: end: 20130405
  6. ZIAC [Suspect]
     Indication: HYPERTENSION
     Dosage: 5 MG, DAILY
     Dates: end: 20130405

REACTIONS (2)
  - Drug screen positive [Unknown]
  - Weight decreased [Unknown]
